FAERS Safety Report 6869762-8 (Version None)
Quarter: 2010Q3

REPORT INFORMATION
  Report Type: 
  Country: None (occurrence: None)
  Receive Date: 20100722
  Receipt Date: 20080827
  Transmission Date: 20110219
  Serious: No
  Sender: FDA-Public Use
  Company Number: US-PFIZER INC-2008067347

PATIENT
  Sex: Male
  Weight: 86.4 kg

DRUGS (3)
  1. CHANTIX [Suspect]
     Indication: SMOKING CESSATION THERAPY
     Dates: start: 20080807
  2. ALL OTHER THERAPEUTIC PRODUCTS [Concomitant]
  3. ACETYLSALICYLIC ACID [Concomitant]

REACTIONS (4)
  - DIZZINESS [None]
  - DYSGEUSIA [None]
  - EYE SWELLING [None]
  - THROAT IRRITATION [None]
